FAERS Safety Report 17458732 (Version 1)
Quarter: 2020Q1

REPORT INFORMATION
  Report Type: Spontaneous
  Country: US (occurrence: US)
  Receive Date: 20191003
  Receipt Date: 20191003
  Transmission Date: 20200409
  Serious: Yes (Life-Threatening, Hospitalization, Disabling)
  Sender: FDA-Public Use
  Company Number: None

PATIENT
  Age: 27 Year
  Sex: Male

DRUGS (6)
  1. STRAIGHT FIRE VACUUM SEALED CARTS [THC] [Suspect]
     Active Substance: .DELTA.8-TETRAHYDROCANNABINOL\DEVICE\HERBALS
     Route: 055
  2. LEGENDARY CARTS [THC/CBD] [Suspect]
     Active Substance: CANNABIDIOL\.DELTA.8-TETRAHYDROCANNABINOL\DEVICE\HERBALS
  3. MIRTAZIPINE [Concomitant]
     Active Substance: MIRTAZAPINE
  4. VALLEY LABS THC CARTRIDGES [Suspect]
     Active Substance: CANNABIDIOL\.DELTA.8-TETRAHYDROCANNABINOL\DEVICE\HERBALS
     Route: 055
  5. ROGAIN [Concomitant]
     Active Substance: MINOXIDIL
  6. ADDERALL PM [Concomitant]

REACTIONS (7)
  - Asthma [None]
  - Obliterative bronchiolitis [None]
  - Influenza [None]
  - Dyspnoea [None]
  - Chronic obstructive pulmonary disease [None]
  - Pneumonia lipoid [None]
  - Loss of consciousness [None]
